FAERS Safety Report 10369789 (Version 1)
Quarter: 2014Q3

REPORT INFORMATION
  Report Type: Spontaneous
  Country: IT (occurrence: IT)
  Receive Date: 20140808
  Receipt Date: 20140808
  Transmission Date: 20150326
  Serious: Yes (Other)
  Sender: FDA-Public Use
  Company Number: IT-ABBVIE-14P-083-1267880-00

PATIENT
  Sex: Male

DRUGS (6)
  1. METINOX [Concomitant]
     Indication: PRODUCT USED FOR UNKNOWN INDICATION
     Dosage: DURING THE WEEK
  2. RITUXIMAB [Concomitant]
     Active Substance: RITUXIMAB
     Indication: PRODUCT USED FOR UNKNOWN INDICATION
  3. LEDERSPAN [Concomitant]
     Indication: PRODUCT USED FOR UNKNOWN INDICATION
  4. KENACORT WITH HYALURONIC ACID [Concomitant]
     Indication: PRODUCT USED FOR UNKNOWN INDICATION
     Dates: start: 201407
  5. INFLIXIMAB [Concomitant]
     Active Substance: INFLIXIMAB
     Indication: PRODUCT USED FOR UNKNOWN INDICATION
  6. HUMIRA [Suspect]
     Active Substance: ADALIMUMAB
     Indication: RHEUMATOID ARTHRITIS
     Dates: start: 2006

REACTIONS (13)
  - Fatigue [Unknown]
  - Joint stiffness [Unknown]
  - Unevaluable event [Unknown]
  - Uveitis [Unknown]
  - Eye disorder [Unknown]
  - Arthritis [Unknown]
  - Joint swelling [Unknown]
  - Red blood cell sedimentation rate increased [Unknown]
  - Dissociation [Unknown]
  - Exercise tolerance decreased [Unknown]
  - Immunodeficiency [Unknown]
  - Tenosynovitis [Unknown]
  - Arthropathy [Unknown]
